FAERS Safety Report 8834744 (Version 2)
Quarter: 2012Q4

REPORT INFORMATION
  Report Type: Report from Study
  Country: JP (occurrence: JP)
  Receive Date: 20121010
  Receipt Date: 20121113
  Transmission Date: 20130627
  Serious: Yes (Hospitalization)
  Sender: FDA-Public Use
  Company Number: JP-EISAI INC-E7389-02637-CLI-JP

PATIENT
  Age: 38 Year
  Sex: Female
  Weight: 42 kg

DRUGS (6)
  1. HALAVEN [Suspect]
     Indication: BREAST CANCER RECURRENT
     Route: 041
     Dates: start: 20110808, end: 20110808
  2. HALAVEN [Suspect]
     Indication: METASTASES TO BRAIN
     Route: 041
     Dates: start: 20110823, end: 20110823
  3. HALAVEN [Suspect]
     Route: 041
     Dates: start: 20110906, end: 20120314
  4. RINDERON [Concomitant]
     Indication: PROPHYLAXIS
     Route: 048
  5. MEIACT [Concomitant]
     Indication: GINGIVITIS
     Route: 048
  6. LOXONIN [Concomitant]
     Route: 048

REACTIONS (3)
  - Pneumonia [Recovering/Resolving]
  - Febrile neutropenia [Recovered/Resolved]
  - Leukopenia [Recovered/Resolved]
